FAERS Safety Report 4444547-0 (Version None)
Quarter: 2004Q3

REPORT INFORMATION
  Report Type: 
  Country: None (occurrence: None)
  Receive Date: 20040902
  Receipt Date: 20040819
  Transmission Date: 20050211
  Serious: Yes (Life-Threatening, Hospitalization)
  Sender: FDA-Public Use
  Company Number: 2004-0007382

PATIENT
  Age: 29 Year
  Sex: Male
  Weight: 85.2762 kg

DRUGS (9)
  1. VIREAD (TENOFOVIR DISOPROXIL FUMARATE) (300 MG, TABLET) [Suspect]
     Indication: HIV INFECTION
     Dosage: 300 MG, 1 IN 1 D, ORAL
     Route: 048
  2. EPIVIR [Concomitant]
  3. SUSTIVA [Concomitant]
  4. XANAX [Concomitant]
  5. SOMA [Concomitant]
  6. LOMOTIL [Concomitant]
  7. HYDROCODONE/APAP (PROCET/USA/) [Concomitant]
  8. LANEX (OMEPRAZOLE) (2.5 MG) [Concomitant]
  9. ZOLOFT [Concomitant]

REACTIONS (6)
  - ACCIDENTAL OVERDOSE [None]
  - ASTHENIA [None]
  - HYPERHIDROSIS [None]
  - LETHARGY [None]
  - SEDATION [None]
  - TACHYCARDIA [None]
